FAERS Safety Report 7897509-5 (Version None)
Quarter: 2011Q4

REPORT INFORMATION
  Report Type: 
  Country: None (occurrence: None)
  Receive Date: 20111107
  Receipt Date: 20111024
  Transmission Date: 20120403
  Serious: Yes (Other)
  Sender: FDA-Public Use
  Company Number: CA-JNJFOC-20111100981

PATIENT
  Sex: Female
  Weight: 94.8 kg

DRUGS (6)
  1. REMICADE [Suspect]
     Indication: CROHN'S DISEASE
     Route: 042
     Dates: start: 20100714
  2. CALCIUM [Concomitant]
  3. REMICADE [Suspect]
     Dosage: 11TH INFUSION
     Route: 042
     Dates: start: 20111024
  4. VITAMIN B COMPLEX CAP [Concomitant]
  5. ZOPICLONE [Concomitant]
     Indication: SLEEP DISORDER THERAPY
  6. A MULTIVITAMIN [Concomitant]

REACTIONS (1)
  - CARTILAGE INJURY [None]
